FAERS Safety Report 14748255 (Version 3)
Quarter: 2019Q2

REPORT INFORMATION
  Report Type: Report from Study
  Country: ES (occurrence: ES)
  Receive Date: 20180411
  Receipt Date: 20190509
  Transmission Date: 20190711
  Serious: Yes (Hospitalization, Other)
  Sender: FDA-Public Use
  Company Number: ES-BAUSCH-BL-2018-009443

PATIENT
  Age: 3 Year
  Sex: Female
  Weight: 17.5 kg

DRUGS (18)
  1. DAUNORUBICINA HIDROCLORURO [Suspect]
     Active Substance: DAUNORUBICIN HYDROCHLORIDE
     Indication: ACUTE LYMPHOCYTIC LEUKAEMIA
     Route: 042
     Dates: start: 20170718, end: 20170725
  2. SEPTRIN PEDIATRICO [Concomitant]
     Dosage: 8 MG/40 MG/ML, 1 BOTTLE OF 100 ML
     Route: 048
     Dates: start: 20170627
  3. SULFAMETOXAZOL/TRIMETOPRIMA [Concomitant]
     Indication: OPPORTUNISTIC INFECTION PROPHYLAXIS
     Route: 048
     Dates: start: 20170627
  4. ONCASPAR [Suspect]
     Active Substance: PEGASPARGASE
     Dosage: 1 VIAL OF 5 ML
     Route: 030
     Dates: start: 20170722, end: 20170722
  5. ACICLOVIR [Concomitant]
     Active Substance: ACYCLOVIR
     Indication: ANTIVIRAL PROPHYLAXIS
     Dosage: DOSAGE UNIT FREQUENCY: 6 ML, DOSAGE PER DOSE: 2ML
     Route: 048
     Dates: start: 20160704, end: 20170409
  6. METILPREDNISOLONA [Suspect]
     Active Substance: METHYLPREDNISOLONE
     Indication: ACUTE LYMPHOCYTIC LEUKAEMIA
     Route: 042
     Dates: start: 20170627, end: 20170801
  7. FLUCONAZOL [Concomitant]
     Active Substance: FLUCONAZOLE
     Indication: OPPORTUNISTIC INFECTION PROPHYLAXIS
     Route: 048
     Dates: start: 20170627
  8. HIDROCORTISONA [Suspect]
     Active Substance: HYDROCORTISONE
     Indication: PRODUCT USED FOR UNKNOWN INDICATION
     Dosage: TREATMENT
     Route: 065
  9. HIDROCORTISONA [Suspect]
     Active Substance: HYDROCORTISONE
     Indication: ACUTE LYMPHOCYTIC LEUKAEMIA
     Dosage: DOSAGE UNIT FREQUENCY: 6 MG. DOSAGE PER DOSE: 2 MG
     Route: 048
     Dates: start: 20161221, end: 20170201
  10. VINCRISTINA SULFATO [Suspect]
     Active Substance: VINCRISTINE SULFATE
     Indication: ACUTE LYMPHOCYTIC LEUKAEMIA
     Route: 042
     Dates: start: 20170718, end: 20170725
  11. METHOTREXATE (METHOTREXATE SODIUM) [Suspect]
     Active Substance: METHOTREXATE SODIUM
     Indication: ACUTE LYMPHOCYTIC LEUKAEMIA
     Dosage: DOSAGE UNIT FREQUENCY: 10 MG, DOSAGE PER DOSE: 10 MG,
     Route: 048
     Dates: start: 20170201, end: 20170409
  12. SEPTRIN PEDIATRICO [Concomitant]
     Indication: ANTIBIOTIC PROPHYLAXIS
     Dosage: 8 MG/40 MG/ML, 1 BOTTLE OF 100 ML
     Route: 048
  13. AMFOTERICINA B [Concomitant]
     Indication: OPPORTUNISTIC INFECTION PROPHYLAXIS
     Dosage: WEEKLY
     Route: 045
     Dates: start: 20170627
  14. OMEPRAZOL [Concomitant]
     Active Substance: OMEPRAZOLE
     Indication: PROPHYLAXIS AGAINST GASTROINTESTINAL ULCER
     Route: 042
     Dates: start: 20170627, end: 20170801
  15. ACICLOVIR [Concomitant]
     Active Substance: ACYCLOVIR
     Indication: OPPORTUNISTIC INFECTION PROPHYLAXIS
     Route: 048
     Dates: start: 20170627
  16. ONCASPAR [Suspect]
     Active Substance: PEGASPARGASE
     Indication: ACUTE LYMPHOCYTIC LEUKAEMIA
     Dosage: DOSAGE UNIT FREQUENCY: 2700 IU. DOSAGE PER DOSE: 675 IU,
     Route: 030
     Dates: start: 20170201, end: 20170314
  17. MERCAPTOPURINA [Suspect]
     Active Substance: MERCAPTOPURINE
     Indication: ACUTE LYMPHOCYTIC LEUKAEMIA
     Dosage: DOSE UNIT FREQUENCY: 16 MILLIGRAMS, DOSAGE PER DOSE: 16 MG
     Route: 048
     Dates: start: 20170201, end: 20170409
  18. SEPTRIN PEDIATRICO [Concomitant]
     Dosage: DOSE UNIT FREQUENCY: 9 ML, DOSAGE PER DOSE: 4.5 ML, 1 BOTTLE OF 100 ML
     Route: 048
     Dates: start: 20160704, end: 20170409

REACTIONS (4)
  - Neutropenia [Recovered/Resolved]
  - Shock [Recovered/Resolved]
  - Device related infection [Recovered/Resolved]
  - Febrile neutropenia [Recovered/Resolved]

NARRATIVE: CASE EVENT DATE: 20170328
